FAERS Safety Report 25031563 (Version 2)
Quarter: 2025Q2

REPORT INFORMATION
  Report Type: Spontaneous
  Country: CA (occurrence: CA)
  Receive Date: 20250303
  Receipt Date: 20250627
  Transmission Date: 20250717
  Serious: Yes (Death, Life-Threatening, Hospitalization, Disabling, Congenital Anomaly, Other)
  Sender: ABBVIE
  Company Number: CA-ABBVIE-6153002

PATIENT
  Age: 59 Year
  Sex: Female
  Weight: 68 kg

DRUGS (11)
  1. HUMIRA [Suspect]
     Active Substance: ADALIMUMAB
     Indication: Rheumatoid arthritis
     Route: 058
  2. DILAUDID [Concomitant]
     Active Substance: HYDROMORPHONE HYDROCHLORIDE
     Indication: Product used for unknown indication
  3. XELJANZ [Concomitant]
     Active Substance: TOFACITINIB CITRATE
     Indication: Product used for unknown indication
  4. DICLOFENAC [Concomitant]
     Active Substance: DICLOFENAC
     Indication: Product used for unknown indication
  5. CAFFEINE CITRATE [Concomitant]
     Active Substance: CAFFEINE CITRATE
     Indication: Product used for unknown indication
     Route: 065
  6. WELLBUTRIN [Concomitant]
     Active Substance: BUPROPION HYDROCHLORIDE
     Indication: Product used for unknown indication
     Route: 065
  7. BUPROPION [Concomitant]
     Active Substance: BUPROPION
     Indication: Product used for unknown indication
     Route: 065
  8. HYDROMORPHONE HYDROCHLORIDE [Concomitant]
     Active Substance: HYDROMORPHONE HYDROCHLORIDE
     Indication: Product used for unknown indication
  9. SULFASALAZINE [Concomitant]
     Active Substance: SULFASALAZINE
     Indication: Product used for unknown indication
  10. IBUPROFEN [Concomitant]
     Active Substance: IBUPROFEN
     Indication: Product used for unknown indication
  11. LISINOPRIL [Concomitant]
     Active Substance: LISINOPRIL
     Indication: Product used for unknown indication

REACTIONS (84)
  - Osteoporosis [Fatal]
  - Intentional product use issue [Fatal]
  - Nausea [Fatal]
  - Anti-cyclic citrullinated peptide antibody positive [Fatal]
  - Arthralgia [Fatal]
  - Hepatic cirrhosis [Fatal]
  - Joint stiffness [Fatal]
  - Incorrect route of product administration [Fatal]
  - Bone erosion [Fatal]
  - Pemphigus [Fatal]
  - Mobility decreased [Fatal]
  - C-reactive protein increased [Fatal]
  - Treatment failure [Fatal]
  - Infection [Fatal]
  - Product use in unapproved indication [Fatal]
  - Osteoarthritis [Fatal]
  - Headache [Fatal]
  - Maternal exposure during pregnancy [Fatal]
  - Adverse drug reaction [Fatal]
  - Rheumatoid factor positive [Fatal]
  - Abdominal discomfort [Fatal]
  - Dizziness [Fatal]
  - Malaise [Fatal]
  - Drug intolerance [Fatal]
  - Hepatic enzyme increased [Fatal]
  - Hypoaesthesia [Fatal]
  - Exostosis [Fatal]
  - Musculoskeletal stiffness [Fatal]
  - Visual impairment [Fatal]
  - Lupus-like syndrome [Fatal]
  - Joint swelling [Fatal]
  - Foot deformity [Fatal]
  - Decreased appetite [Fatal]
  - Ear infection [Fatal]
  - Joint dislocation [Fatal]
  - Pain in extremity [Fatal]
  - Pneumonia [Fatal]
  - Contraindicated product administered [Fatal]
  - Rheumatoid arthritis [Fatal]
  - Pain [Fatal]
  - Alopecia [Fatal]
  - Condition aggravated [Fatal]
  - Drug hypersensitivity [Fatal]
  - Therapeutic product effect decreased [Fatal]
  - Pericarditis [Fatal]
  - General physical health deterioration [Fatal]
  - Synovitis [Fatal]
  - Discomfort [Fatal]
  - Retinitis [Fatal]
  - Hypersensitivity [Fatal]
  - Wound [Fatal]
  - Off label use [Fatal]
  - Laryngitis [Fatal]
  - Systemic lupus erythematosus [Fatal]
  - Crohn^s disease [Fatal]
  - Oedema peripheral [Fatal]
  - Rash [Fatal]
  - Hand deformity [Fatal]
  - Therapeutic product effect incomplete [Fatal]
  - Red blood cell sedimentation rate increased [Fatal]
  - Arthritis [Fatal]
  - Glossodynia [Fatal]
  - Drug ineffective [Fatal]
  - Fatigue [Fatal]
  - Fibromyalgia [Fatal]
  - Hypercholesterolaemia [Fatal]
  - Hypertension [Fatal]
  - Injury [Fatal]
  - Duodenal ulcer perforation [Fatal]
  - Exposure during pregnancy [Fatal]
  - Helicobacter infection [Fatal]
  - Infusion related reaction [Fatal]
  - Psoriatic arthropathy [Fatal]
  - Rheumatic fever [Fatal]
  - Type 2 diabetes mellitus [Fatal]
  - Anxiety [Fatal]
  - Asthma [Fatal]
  - Blister [Fatal]
  - Blood cholesterol increased [Fatal]
  - Diarrhoea [Fatal]
  - Arthropathy [Fatal]
  - Liver injury [Fatal]
  - Lupus vulgaris [Fatal]
  - Product use issue [Fatal]
